FAERS Safety Report 19435639 (Version 1)
Quarter: 2021Q2

REPORT INFORMATION
  Report Type: Spontaneous
  Country: JP (occurrence: JP)
  Receive Date: 20210618
  Receipt Date: 20210618
  Transmission Date: 20210717
  Serious: Yes (Other)
  Sender: FDA-Public Use
  Company Number: JP-GLAXOSMITHKLINE-JP2021JPN129405

PATIENT
  Age: 4 Decade
  Sex: Female

DRUGS (3)
  1. PREDNISOLONE. [Concomitant]
     Active Substance: PREDNISOLONE
     Indication: BASEDOW^S DISEASE
     Dosage: 20 MG
  2. POTASSIUM IODIDE. [Concomitant]
     Active Substance: POTASSIUM IODIDE
     Indication: BASEDOW^S DISEASE
     Dosage: 100 MG
  3. FLOLAN [Suspect]
     Active Substance: EPOPROSTENOL SODIUM
     Indication: PULMONARY ARTERIAL HYPERTENSION
     Dosage: UNK UNK, CO
     Route: 041

REACTIONS (7)
  - Endocrine ophthalmopathy [Recovering/Resolving]
  - Basedow^s disease [Unknown]
  - Goitre [Recovering/Resolving]
  - Musculoskeletal discomfort [Unknown]
  - Pyrexia [Unknown]
  - Hyperthyroidism [Recovering/Resolving]
  - Fat tissue increased [Unknown]
